FAERS Safety Report 8579527-7 (Version None)
Quarter: 2012Q3

REPORT INFORMATION
  Report Type: 
  Country: None (occurrence: None)
  Receive Date: 20120808
  Receipt Date: 20120731
  Transmission Date: 20120928
  Serious: Yes (Hospitalization)
  Sender: FDA-Public Use
  Company Number: US-JNJFOC-20120800360

PATIENT
  Sex: Male
  Weight: 77.11 kg

DRUGS (2)
  1. SIMPONI [Suspect]
     Indication: ARTHRITIS
     Route: 058
     Dates: start: 20110101
  2. ALL OTHER THERAPEUTIC DRUG [Concomitant]
     Route: 065

REACTIONS (2)
  - CHOLELITHIASIS [None]
  - DRUG DOSE OMISSION [None]
